FAERS Safety Report 5631076-1 (Version None)
Quarter: 2008Q1

REPORT INFORMATION
  Report Type: 
  Country: None (occurrence: None)
  Receive Date: 20080219
  Receipt Date: 20080207
  Transmission Date: 20080703
  Serious: Yes (Other)
  Sender: FDA-Public Use
  Company Number: US-PFIZER INC-2008012909

PATIENT
  Age: 66 Year
  Sex: Male

DRUGS (1)
  1. CHANTIX [Suspect]
     Indication: SMOKING CESSATION THERAPY

REACTIONS (10)
  - ABNORMAL DREAMS [None]
  - ANOREXIA [None]
  - ARTHROPATHY [None]
  - DEPRESSION [None]
  - FATIGUE [None]
  - FLATULENCE [None]
  - MEMORY IMPAIRMENT [None]
  - NEGATIVE THOUGHTS [None]
  - STOMACH DISCOMFORT [None]
  - WEIGHT DECREASED [None]
